FAERS Safety Report 6818787-7 (Version None)
Quarter: 2010Q3

REPORT INFORMATION
  Report Type: 
  Country: None (occurrence: None)
  Receive Date: 20100701
  Receipt Date: 20100617
  Transmission Date: 20110219
  Serious: Yes (Hospitalization)
  Sender: FDA-Public Use
  Company Number: 2009SP011135

PATIENT
  Age: 47 Year
  Sex: Male
  Weight: 92.0802 kg

DRUGS (8)
  1. PEG-INTRON [Suspect]
     Indication: HEPATITIS C
     Dosage: 150 MCG; QW; IM, 105 MCG; QW; IM
     Route: 030
     Dates: start: 20081029, end: 20090516
  2. RIBAVIRIN [Suspect]
     Indication: HEPATITIS C
     Dosage: 1400 MG; QD; PO
     Route: 048
     Dates: start: 20081029, end: 20090519
  3. BOCEPREVIR [Suspect]
     Indication: HEPATITIS C
     Dosage: 2400 MG; QD; PO
     Route: 048
     Dates: start: 20081201, end: 20090519
  4. AMLODIPINE BESYLATE [Concomitant]
  5. BENICAR HCT [Concomitant]
  6. PROCRIT [Concomitant]
  7. SULFAMETHOXAZOLE [Concomitant]
  8. TRIMETHOPRIM [Concomitant]

REACTIONS (6)
  - ABDOMINAL PAIN [None]
  - INJECTION SITE INFECTION [None]
  - MASS [None]
  - SCROTAL ABSCESS [None]
  - STAPHYLOCOCCAL ABSCESS [None]
  - WOUND [None]
